FAERS Safety Report 23684640 (Version 1)
Quarter: 2024Q1

REPORT INFORMATION
  Report Type: Spontaneous
  Country: US (occurrence: US)
  Receive Date: 20240328
  Receipt Date: 20240328
  Transmission Date: 20240410
  Serious: No
  Sender: FDA-Public Use
  Company Number: US-Evolus, Inc.-2023EV000158

PATIENT
  Age: 37 Year
  Sex: Female

DRUGS (2)
  1. JEUVEAU [Suspect]
     Active Substance: PRABOTULINUMTOXINA-XVFS
     Indication: Skin wrinkling
     Dosage: FRONTALIS 9 UNITS, 1/2 IN LOWER LATERAL MARK AND MID LATERAL MARK ABOVE BROW, ONE UNIT ALL OTHER MAR
     Dates: start: 20221101, end: 20221101
  2. JEUVEAU [Suspect]
     Active Substance: PRABOTULINUMTOXINA-XVFS
     Indication: Product used for unknown indication
     Dosage: FRONTALIS 11.25 UNITS, 1 UNIT IN ALL MARK EXCEPT 1/4 UNIT IN LINE ABOVE RIGHT BROW; GLABELLA 16 UNIT
     Dates: start: 20230314, end: 20230314

REACTIONS (2)
  - Drug effect less than expected [Unknown]
  - Off label use [Unknown]

NARRATIVE: CASE EVENT DATE: 20230314
